FAERS Safety Report 10705246 (Version 2)
Quarter: 2016Q1

REPORT INFORMATION
  Report Type: Spontaneous
  Country: US (occurrence: US)
  Receive Date: 20150112
  Receipt Date: 20160229
  Transmission Date: 20160525
  Serious: Yes (Other)
  Sender: FDA-Public Use
  Company Number: US-ELI_LILLY_AND_COMPANY-US201501000818

PATIENT
  Sex: Male

DRUGS (2)
  1. CYMBALTA [Suspect]
     Active Substance: DULOXETINE HYDROCHLORIDE
     Indication: PRODUCT USED FOR UNKNOWN INDICATION
     Dosage: UNK, UNKNOWN
     Route: 065
     Dates: start: 200701, end: 201301
  2. CYMBALTA [Suspect]
     Active Substance: DULOXETINE HYDROCHLORIDE
     Dosage: UNK, UNKNOWN
     Route: 065
     Dates: start: 201303

REACTIONS (10)
  - Headache [Unknown]
  - Drug withdrawal syndrome [Unknown]
  - Suicide attempt [Unknown]
  - Anxiety [Unknown]
  - Irritability [Unknown]
  - Anger [Unknown]
  - Influenza like illness [Unknown]
  - Nightmare [Unknown]
  - Depression [Unknown]
  - Pyrexia [Unknown]
